FAERS Safety Report 20211482 (Version 1)
Quarter: 2021Q4

REPORT INFORMATION
  Report Type: Spontaneous
  Country: FR (occurrence: FR)
  Receive Date: 20211221
  Receipt Date: 20211221
  Transmission Date: 20220303
  Serious: Yes (Other)
  Sender: FDA-Public Use
  Company Number: FR-ABBVIE-21K-056-4206194-00

PATIENT
  Age: 29 Year
  Sex: Male

DRUGS (1)
  1. DEPAKOTE [Suspect]
     Active Substance: DIVALPROEX SODIUM
     Indication: Schizophrenia
     Dosage: 500 MG 2/JOUR
     Route: 048
     Dates: start: 20211109, end: 20211125

REACTIONS (2)
  - Hepatic cytolysis [Recovered/Resolved]
  - Eosinophilia [Recovering/Resolving]

NARRATIVE: CASE EVENT DATE: 20211101
